FAERS Safety Report 4658774-0 (Version None)
Quarter: 2005Q2

REPORT INFORMATION
  Report Type: 
  Country: None (occurrence: None)
  Receive Date: 20050509
  Receipt Date: 20050426
  Transmission Date: 20051028
  Serious: Yes (Disabling, Other)
  Sender: FDA-Public Use
  Company Number: 2005026776

PATIENT
  Age: 64 Year
  Sex: Female
  Weight: 73 kg

DRUGS (7)
  1. NEURONTIN [Suspect]
     Indication: PHANTOM PAIN
     Dosage: 2400 MG (800 MG, 3 IN 1 D), ORAL
     Route: 048
     Dates: start: 20030901, end: 20041201
  2. TOPIRAMATE [Suspect]
     Indication: PHANTOM PAIN
     Dosage: 200 MG (1 D), ORAL
     Route: 048
  3. FENTANYL [Concomitant]
  4. SERTRALINE HCL [Concomitant]
  5. CLORAZEPATE DIPOTASSIUM [Concomitant]
  6. DIAZEPAM [Concomitant]
  7. CLONAZEPAM [Concomitant]

REACTIONS (5)
  - BLINDNESS [None]
  - HYPERMETROPIA [None]
  - MACULAR DEGENERATION [None]
  - MACULAR OEDEMA [None]
  - RETINOPATHY [None]
